FAERS Safety Report 4598581-0 (Version None)
Quarter: 2005Q1

REPORT INFORMATION
  Report Type: 
  Country: None (occurrence: None)
  Receive Date: 20050304
  Receipt Date: 20050218
  Transmission Date: 20050727
  Serious: Yes (Hospitalization)
  Sender: FDA-Public Use
  Company Number: DE-ROCHE-396075

PATIENT
  Age: 70 Year
  Sex: Female

DRUGS (1)
  1. BONDRONAT [Suspect]
     Route: 065
     Dates: start: 19990815

REACTIONS (1)
  - ASEPTIC NECROSIS BONE [None]
